FAERS Safety Report 16483697 (Version 1)
Quarter: 2019Q2

REPORT INFORMATION
  Report Type: Spontaneous
  Country: JP (occurrence: JP)
  Receive Date: 20190627
  Receipt Date: 20190627
  Transmission Date: 20190711
  Serious: Yes (Life-Threatening)
  Sender: FDA-Public Use
  Company Number: JP-ELI_LILLY_AND_COMPANY-JP201906011939

PATIENT

DRUGS (4)
  1. CARERAM [Concomitant]
     Active Substance: IGURATIMOD
  2. OLUMIANT [Suspect]
     Active Substance: BARICITINIB
     Indication: RHEUMATOID ARTHRITIS
     Dosage: UNK
     Route: 048
  3. AZULFIDINE EN-TABS [Concomitant]
     Active Substance: SULFASALAZINE
     Dosage: UNK
  4. RIMATIL [Concomitant]
     Active Substance: BUCILLAMINE

REACTIONS (1)
  - Large intestine perforation [Recovered/Resolved]
